FAERS Safety Report 10583572 (Version 4)
Quarter: 2014Q4

REPORT INFORMATION
  Report Type: Report from Study
  Country: RU (occurrence: RU)
  Receive Date: 20141114
  Receipt Date: 20141217
  Transmission Date: 20150529
  Serious: Yes (Life-Threatening, Hospitalization, Disabling, Other)
  Sender: FDA-Public Use
  Company Number: RU-JNJFOC-20140918958

PATIENT
  Age: 69 Year
  Sex: Female
  Weight: 76 kg

DRUGS (15)
  1. BETALOC ZOK [Concomitant]
     Active Substance: METOPROLOL SUCCINATE
     Route: 065
     Dates: start: 20140326, end: 20140326
  2. BETALOC ZOK [Concomitant]
     Active Substance: METOPROLOL SUCCINATE
     Route: 065
     Dates: start: 20140322, end: 20140325
  3. INDAPAMIDE. [Concomitant]
     Active Substance: INDAPAMIDE
     Route: 065
     Dates: start: 20140322
  4. PROPANORM [Concomitant]
     Active Substance: PROPAFENONE
     Route: 065
     Dates: start: 20140322, end: 20140322
  5. BISOPROLOL [Concomitant]
     Active Substance: BISOPROLOL
     Route: 065
     Dates: start: 20140820
  6. CYANOCOBALAMIN. [Concomitant]
     Active Substance: CYANOCOBALAMIN
     Route: 065
     Dates: start: 20140820, end: 20140902
  7. FOLIC ACID. [Concomitant]
     Active Substance: FOLIC ACID
     Route: 065
     Dates: start: 20140820
  8. BETALOC ZOK [Concomitant]
     Active Substance: METOPROLOL SUCCINATE
     Route: 065
     Dates: start: 20140327, end: 20140819
  9. XARELTO [Suspect]
     Active Substance: RIVAROXABAN
     Indication: THROMBOSIS PROPHYLAXIS
     Route: 048
     Dates: start: 20140326, end: 20140819
  10. XARELTO [Suspect]
     Active Substance: RIVAROXABAN
     Indication: ATRIAL FIBRILLATION
     Route: 048
     Dates: start: 20140326, end: 20140819
  11. XARELTO [Suspect]
     Active Substance: RIVAROXABAN
     Indication: CEREBROVASCULAR ACCIDENT PROPHYLAXIS
     Route: 048
     Dates: start: 20140326, end: 20140819
  12. OMEPRAZOLUM [Concomitant]
     Route: 065
     Dates: start: 20140322
  13. SORBIFER [Concomitant]
     Active Substance: FERROUS SULFATE\FERROUS SULFATE, DRIED
     Route: 065
     Dates: start: 20140820
  14. PANCREATIN [Concomitant]
     Active Substance: PANCRELIPASE
     Route: 065
     Dates: start: 20140820
  15. PERINDOPRILUM [Concomitant]
     Route: 065
     Dates: start: 20140322

REACTIONS (7)
  - Large intestinal stenosis [Unknown]
  - Large intestine benign neoplasm [Unknown]
  - Iron deficiency anaemia [Not Recovered/Not Resolved]
  - Hepatic lesion [Unknown]
  - Haemangioma of bone [Unknown]
  - Rectal polyp [Unknown]
  - Spinal compression fracture [Unknown]

NARRATIVE: CASE EVENT DATE: 20140820
